FAERS Safety Report 25076476 (Version 2)
Quarter: 2025Q2

REPORT INFORMATION
  Report Type: Spontaneous
  Country: US (occurrence: US)
  Receive Date: 20250313
  Receipt Date: 20250408
  Transmission Date: 20250716
  Serious: No
  Sender: CALLIDITAS THERAPEUTICS
  Company Number: US-Calliditas-2025CAL00621

PATIENT
  Age: 35 Year
  Sex: Female

DRUGS (2)
  1. TARPEYO [Suspect]
     Active Substance: BUDESONIDE
     Indication: IgA nephropathy
     Route: 048
     Dates: start: 20241120, end: 20250222
  2. FILSPARI [Concomitant]
     Active Substance: SPARSENTAN

REACTIONS (2)
  - Drug ineffective [Not Recovered/Not Resolved]
  - Urine protein/creatinine ratio increased [Unknown]
